APPROVED DRUG PRODUCT: DEXAMETHASONE
Active Ingredient: DEXAMETHASONE SODIUM PHOSPHATE
Strength: EQ 10MG PHOSPHATE/ML
Dosage Form/Route: INJECTABLE;INJECTION
Application: A088469 | Product #001
Applicant: FRESENIUS KABI USA LLC
Approved: Jan 25, 1984 | RLD: No | RS: No | Type: DISCN